FAERS Safety Report 13243338 (Version 1)
Quarter: 2017Q1

REPORT INFORMATION
  Report Type: Spontaneous
  Country: US (occurrence: US)
  Receive Date: 20170216
  Receipt Date: 20170216
  Transmission Date: 20170428
  Serious: No
  Sender: FDA-Public Use
  Company Number: US-ALLERGAN-1677506US

PATIENT
  Age: 43 Year
  Sex: Male

DRUGS (1)
  1. KYBELLA [Suspect]
     Active Substance: DEOXYCHOLIC ACID
     Indication: PRODUCT USED FOR UNKNOWN INDICATION
     Dosage: UNK UNK, SINGLE
     Route: 058
     Dates: start: 201611, end: 201611

REACTIONS (6)
  - Oropharyngeal pain [Unknown]
  - Injection site discomfort [Unknown]
  - Rhinorrhoea [Unknown]
  - Nasopharyngitis [Unknown]
  - Viral infection [Unknown]
  - Pain [Unknown]
